FAERS Safety Report 6615386-7 (Version None)
Quarter: 2010Q1

REPORT INFORMATION
  Report Type: 
  Country: None (occurrence: None)
  Receive Date: 20100305
  Receipt Date: 20090930
  Transmission Date: 20100710
  Serious: No
  Sender: FDA-Public Use
  Company Number: A0810198A

PATIENT
  Age: 83 Year
  Sex: Female

DRUGS (4)
  1. REQUIP [Suspect]
     Indication: PARKINSONISM
     Dosage: 2MG FOUR TIMES PER DAY
     Route: 065
     Dates: start: 20060101
  2. THYROID TAB [Concomitant]
  3. BLOOD PRESSURE MEDICATION [Concomitant]
  4. CHOLESTEROL REDUCING AGENT [Concomitant]

REACTIONS (5)
  - ADVERSE EVENT [None]
  - FALL [None]
  - MUSCLE SPASMS [None]
  - SLEEP DISORDER [None]
  - TREMOR [None]
